FAERS Safety Report 20705935 (Version 3)
Quarter: 2024Q1

REPORT INFORMATION
  Report Type: Report from Study
  Country: CO (occurrence: CO)
  Receive Date: 20220413
  Receipt Date: 20240109
  Transmission Date: 20240410
  Serious: Yes (Other)
  Sender: FDA-Public Use
  Company Number: CO-NOVARTISPH-NVSC2022CO083733

PATIENT
  Sex: Male
  Weight: 93 kg

DRUGS (7)
  1. COSENTYX [Suspect]
     Active Substance: SECUKINUMAB
     Indication: Psoriatic arthropathy
     Dosage: 150 MG, QMO
     Route: 058
     Dates: start: 20190214
  2. COSENTYX [Suspect]
     Active Substance: SECUKINUMAB
     Indication: Ankylosing spondylitis
     Dosage: 150 MG, QMO (7 YEARS AGO)
     Route: 058
  3. COSENTYX [Suspect]
     Active Substance: SECUKINUMAB
     Dosage: 150 MG, QMO
     Route: 058
  4. VALSARTAN [Suspect]
     Active Substance: VALSARTAN
     Indication: Hypertension
     Dosage: 160 MG, QD (35 YEARS AGO)
     Route: 048
  5. ALLOPURINOL [Concomitant]
     Active Substance: ALLOPURINOL
     Indication: Blood uric acid abnormal
     Dosage: 100 MG, QD (35 YEARS AGO)
     Route: 048
  6. NORTRICOL [Concomitant]
     Indication: Blood cholesterol increased
     Dosage: 200 MG, QD (5 MONTHS AGO)
     Route: 048
  7. NORTRICOL [Concomitant]
     Indication: Blood triglycerides increased

REACTIONS (3)
  - Cataract [Recovering/Resolving]
  - Decreased immune responsiveness [Unknown]
  - Influenza [Unknown]

NARRATIVE: CASE EVENT DATE: 20190101
